FAERS Safety Report 23497331 (Version 1)
Quarter: 2024Q1

REPORT INFORMATION
  Report Type: Spontaneous
  Country: US (occurrence: None)
  Receive Date: 20240207
  Receipt Date: 20240207
  Transmission Date: 20240410
  Serious: Yes (unspecified)
  Sender: FDA-Public Use
  Company Number: None

PATIENT
  Age: 42 Year
  Sex: Female
  Weight: 78.3 kg

DRUGS (13)
  1. NURTEC ODT [Suspect]
     Active Substance: RIMEGEPANT SULFATE
     Indication: Migraine prophylaxis
     Dosage: OTHER QUANTITY : 1 TABLET(S);?OTHER FREQUENCY : EVERY OTHER DAY;?
     Route: 060
     Dates: start: 20240127
  2. TOPIRAMATE [Concomitant]
     Active Substance: TOPIRAMATE
  3. RIZATRIPTAN [Concomitant]
     Active Substance: RIZATRIPTAN
  4. ZINC [Concomitant]
     Active Substance: PYRITHIONE ZINC\ZINC\ZINC CHLORIDE
  5. MAGNESIUM [Concomitant]
     Active Substance: MAGNESIUM
  6. Vit. D3 [Concomitant]
  7. FEVERFEW [Concomitant]
     Active Substance: FEVERFEW
  8. Petadolax (butterbur) [Concomitant]
  9. RIBOFLAVIN [Concomitant]
     Active Substance: RIBOFLAVIN
  10. COENZYME Q10 [Concomitant]
     Active Substance: DIETARY SUPPLEMENT\UBIDECARENONE
  11. PROBIOTICS NOS [Concomitant]
     Active Substance: PROBIOTICS NOS
  12. generic Colace stool softener [Concomitant]
  13. psyllium husk capsules [Concomitant]

REACTIONS (7)
  - Dry skin [None]
  - Skin exfoliation [None]
  - Erythema [None]
  - Pruritus [None]
  - Abdominal pain upper [None]
  - Rash [None]
  - Dyspepsia [None]

NARRATIVE: CASE EVENT DATE: 20240130
